FAERS Safety Report 24611574 (Version 1)
Quarter: 2024Q4

REPORT INFORMATION
  Report Type: Spontaneous
  Country: GB (occurrence: GB)
  Receive Date: 20241113
  Receipt Date: 20241113
  Transmission Date: 20250114
  Serious: Yes (Other)
  Sender: ACCORD
  Company Number: None

PATIENT
  Age: 70 Year

DRUGS (11)
  1. OXYBUTYNIN [Suspect]
     Active Substance: OXYBUTYNIN
     Indication: Product used for unknown indication
     Dosage: 5 MG TABLETS TWO TAKEN TWICE DAILY
     Dates: start: 20241029
  2. LEVOTHYROXINE [Concomitant]
     Active Substance: LEVOTHYROXINE
  3. OXYCODONE HYDROCHLORIDE [Concomitant]
     Active Substance: OXYCODONE HYDROCHLORIDE
     Dosage: 20 MG MODIFIED-RELEASE TABLETS ONE TO BE TAKEN EVERY 12 HOURS
  4. UMECLIDINIUM BROMIDE\VILANTEROL TRIFENATATE [Concomitant]
     Active Substance: UMECLIDINIUM BROMIDE\VILANTEROL TRIFENATATE
     Dosage: 55 / 22 MICROGRAMS / DOSE DRY POWDER INHALER ONE DOSE TO BE INHALED EACH DAY
  5. ZOPICLONE [Concomitant]
     Active Substance: ZOPICLONE
     Dosage: 7.5 MG TABLETS ONE TO BE TAKEN AT NIGHT
  6. ALVERINE [Concomitant]
     Active Substance: ALVERINE
     Dosage: 60 MG CAPSULES 1-2 TABLETS TO BE TAKEN THREE TIMES DAILY WHEN REQUIRED
  7. VENLAFAXINE [Concomitant]
     Active Substance: VENLAFAXINE HYDROCHLORIDE
     Dosage: 37.5 MG TABLETS THREE TO BE TAKEN AT NIGHT
  8. BENZYDAMINE [Concomitant]
     Active Substance: BENZYDAMINE
     Dosage: ORAL RINSE 0.15% SOLUTION RINSE OR GARGLE USING 15 ML
  9. CARBOCYSTEINE [Concomitant]
     Active Substance: CARBOCYSTEINE
     Dosage: 375 MG CAPSULES TWO TO BE TAKEN THREE TIMES A DAY- PT STATES 750MG OM +AMP; ON
  10. GABAPENTIN [Concomitant]
     Active Substance: GABAPENTIN
     Dosage: 300 MG CAPSULES ONE TO BE TAKEN THREE TIMES A DAY- PT STATES 300MG OM +AMP; ON
  11. OMEPRAZOLE [Concomitant]
     Active Substance: OMEPRAZOLE
     Dosage: 20 MG GASTRO-RESISTANT CAPSULES ONE TO BE TAKEN TWICE A DAY

REACTIONS (1)
  - Tooth loss [Unknown]
